FAERS Safety Report 13753247 (Version 1)
Quarter: 2017Q3

REPORT INFORMATION
  Report Type: Spontaneous
  Country: MY (occurrence: MY)
  Receive Date: 20170713
  Receipt Date: 20170713
  Transmission Date: 20171127
  Serious: Yes (Life-Threatening, Hospitalization)
  Sender: FDA-Public Use
  Company Number: MY-GE HEALTHCARE LIFE SCIENCES-2017CSU002061

PATIENT

DRUGS (1)
  1. OMNIPAQUE [Suspect]
     Active Substance: IOHEXOL
     Indication: PRODUCT USED FOR UNKNOWN INDICATION
     Dosage: 70 ML, SINGLE
     Route: 065
     Dates: start: 20170627, end: 20170627

REACTIONS (4)
  - Chills [Recovered/Resolved]
  - Blood pressure decreased [Recovered/Resolved]
  - White blood cell count increased [Recovered/Resolved]
  - Body temperature increased [Recovered/Resolved]

NARRATIVE: CASE EVENT DATE: 20170627
